FAERS Safety Report 11855600 (Version 1)
Quarter: 2015Q4

REPORT INFORMATION
  Report Type: Spontaneous
  Country: US (occurrence: US)
  Receive Date: 20151221
  Receipt Date: 20151221
  Transmission Date: 20160305
  Serious: No
  Sender: FDA-Public Use
  Company Number: US-PERRIGO-14US012212

PATIENT
  Age: 62 Year
  Sex: Male

DRUGS (1)
  1. BACITRACIN OPHTHALMIC USP 500U/G 0S4 [Suspect]
     Active Substance: BACITRACIN
     Indication: BLEPHARITIS
     Dosage: 1 APPLICATION TO BOTH EYES, UNK
     Route: 047
     Dates: start: 201412

REACTIONS (4)
  - Hypersensitivity [Unknown]
  - Abnormal sensation in eye [Unknown]
  - Erythema of eyelid [Unknown]
  - Eyelid oedema [Unknown]

NARRATIVE: CASE EVENT DATE: 201412
